FAERS Safety Report 5422570-7 (Version None)
Quarter: 2007Q3

REPORT INFORMATION
  Report Type: 
  Country: None (occurrence: None)
  Receive Date: 20070822
  Receipt Date: 20070808
  Transmission Date: 20080115
  Serious: Yes (Hospitalization)
  Sender: FDA-Public Use
  Company Number: FR-ELI_LILLY_AND_COMPANY-FR200707007139

PATIENT
  Age: 82 Year
  Sex: Female

DRUGS (11)
  1. PROZAC [Suspect]
     Indication: DEPRESSION
     Dosage: 20 MG, DAILY (1/D)
     Route: 048
     Dates: end: 20070707
  2. ALDACTONE [Concomitant]
     Indication: CARDIAC FAILURE
     Route: 065
  3. LASIX [Concomitant]
     Indication: CARDIAC FAILURE
     Dosage: UNK, UNK
     Route: 065
  4. ATACAND [Concomitant]
     Route: 065
  5. BISOPROLOL [Concomitant]
     Route: 065
  6. IKOREL [Concomitant]
     Route: 065
  7. PLAVIX [Concomitant]
     Route: 065
  8. STAGID [Concomitant]
     Route: 065
  9. AMARYL [Concomitant]
     Route: 065
  10. LEVOTHYROXINE SODIUM [Concomitant]
     Route: 065
  11. SERETIDE DISKUS [Concomitant]
     Route: 065

REACTIONS (3)
  - ASTHENIA [None]
  - GENERAL PHYSICAL HEALTH DETERIORATION [None]
  - HYPONATRAEMIA [None]
